FAERS Safety Report 6720922-6 (Version None)
Quarter: 2010Q2

REPORT INFORMATION
  Report Type: 
  Country: None (occurrence: None)
  Receive Date: 20100512
  Receipt Date: 20100503
  Transmission Date: 20101027
  Serious: Yes (Other)
  Sender: FDA-Public Use
  Company Number: US-JNJFOC-20100500994

PATIENT
  Sex: Female

DRUGS (6)
  1. FENTANYL [Suspect]
     Indication: MUSCULOSKELETAL PAIN
     Route: 062
  2. FENTANYL [Suspect]
     Indication: NECK PAIN
     Route: 062
  3. CELEBREX [Suspect]
     Indication: MUSCULOSKELETAL PAIN
     Route: 065
  4. CELEBREX [Suspect]
     Route: 065
  5. CELEBREX [Suspect]
     Indication: NECK PAIN
     Route: 065
  6. CELEBREX [Suspect]
     Route: 065

REACTIONS (3)
  - ABNORMAL BEHAVIOUR [None]
  - CONFUSIONAL STATE [None]
  - FALL [None]
